FAERS Safety Report 14927018 (Version 1)
Quarter: 2018Q2

REPORT INFORMATION
  Report Type: Spontaneous
  Country: NL (occurrence: NL)
  Receive Date: 20180523
  Receipt Date: 20180523
  Transmission Date: 20180711
  Serious: Yes (Hospitalization, Other)
  Sender: FDA-Public Use
  Company Number: NL-AUROBINDO-AUR-APL-2017-38111

PATIENT
  Age: 22 Year
  Sex: Female

DRUGS (17)
  1. MYCOPHENOLATE [Suspect]
     Active Substance: MYCOPHENOLIC ACID
     Indication: IMMUNOSUPPRESSANT DRUG THERAPY
     Dosage: UNK
     Route: 065
     Dates: start: 20140903
  2. ANAKINRA [Concomitant]
     Active Substance: ANAKINRA
  3. PREDNISONE. [Suspect]
     Active Substance: PREDNISONE
     Indication: RENAL TRANSPLANT
  4. ANAKINRA [Concomitant]
     Active Substance: ANAKINRA
  5. ANAKINRA [Concomitant]
     Active Substance: ANAKINRA
     Dosage: 100 MG, EACH 36 HOUR
     Route: 065
  6. ANAKINRA [Concomitant]
     Active Substance: ANAKINRA
  7. ANAKINRA [Concomitant]
     Active Substance: ANAKINRA
  8. TACROLIMUS. [Concomitant]
     Active Substance: TACROLIMUS
     Indication: IMMUNOSUPPRESSANT DRUG THERAPY
     Dosage: UNK
     Route: 065
  9. PREDNISONE. [Suspect]
     Active Substance: PREDNISONE
     Indication: IMMUNOSUPPRESSANT DRUG THERAPY
     Dosage: UNK
     Route: 065
  10. ANAKINRA [Concomitant]
     Active Substance: ANAKINRA
     Dosage: 100 MG, ON ALTERNATING DAYS
     Route: 065
  11. ANAKINRA [Concomitant]
     Active Substance: ANAKINRA
  12. ANAKINRA [Concomitant]
     Active Substance: ANAKINRA
  13. ANAKINRA [Concomitant]
     Active Substance: ANAKINRA
  14. ANAKINRA [Concomitant]
     Active Substance: ANAKINRA
     Dosage: 100 MG, QD
     Route: 065
  15. ANAKINRA [Concomitant]
     Active Substance: ANAKINRA
     Dosage: UNK ()
     Route: 065
  16. ANAKINRA [Concomitant]
     Active Substance: ANAKINRA
     Indication: CRYOPYRIN ASSOCIATED PERIODIC SYNDROME
     Dosage: 100 MG, EVERY OTHER DAY
     Route: 065
  17. TACROLIMUS. [Concomitant]
     Active Substance: TACROLIMUS
     Dosage: ()
     Dates: start: 20140903

REACTIONS (3)
  - Diarrhoea [Unknown]
  - Epstein-Barr virus infection [Unknown]
  - Influenza [Unknown]
